FAERS Safety Report 9016321 (Version 2)
Quarter: 2013Q1

REPORT INFORMATION
  Report Type: Report from Study
  Country: AR (occurrence: AR)
  Receive Date: 20130116
  Receipt Date: 20130120
  Transmission Date: 20140127
  Serious: Yes (Hospitalization)
  Sender: FDA-Public Use
  Company Number: AR-009507513-1301ARG004300

PATIENT
  Age: 31 Year
  Sex: Female
  Weight: 79 kg

DRUGS (2)
  1. POSACONAZOLE [Suspect]
     Indication: AMERICAN TRYPANOSOMIASIS
     Dosage: 10 ML (400 MG), BID
     Route: 048
     Dates: start: 20121229, end: 20130106
  2. BENZNIDAZOLE [Suspect]
     Indication: AMERICAN TRYPANOSOMIASIS
     Dosage: 200 MG, BID
     Route: 048
     Dates: start: 20121229, end: 20130106

REACTIONS (1)
  - Dermatitis exfoliative [Unknown]
